FAERS Safety Report 7231113-7 (Version None)
Quarter: 2011Q1

REPORT INFORMATION
  Report Type: 
  Country: None (occurrence: None)
  Receive Date: 20110118
  Receipt Date: 20110110
  Transmission Date: 20110831
  Serious: Yes (Hospitalization, Other)
  Sender: FDA-Public Use
  Company Number: US-TEVA-262907USA

PATIENT
  Sex: Female
  Weight: 69.053 kg

DRUGS (11)
  1. METHOTREXATE SOLUTION FOR INJECTION, 25 MG/ML [Suspect]
  2. FOLIC ACID [Concomitant]
  3. CONJUGATED ESTROGEN [Concomitant]
     Dates: end: 20020101
  4. OMEPRAZOLE [Concomitant]
     Dates: start: 20030101
  5. RALOXIFENE HYDROCHLORIDE [Concomitant]
     Dates: start: 20030101
  6. CALCIUM CARBONATE [Concomitant]
  7. ETANERCEPT [Suspect]
     Indication: RHEUMATOID ARTHRITIS
     Dates: start: 20010621, end: 20030723
  8. ROFECOXIB [Concomitant]
     Dates: end: 20030529
  9. FOLINIC ACID [Concomitant]
  10. LEFLUNOMIDE [Concomitant]
  11. ACETAMINOPHEN AND CODEINE PHOSPHATE [Concomitant]

REACTIONS (8)
  - STREPTOCOCCAL URINARY TRACT INFECTION [None]
  - URINARY TRACT INFECTION [None]
  - DYSPHONIA [None]
  - RHEUMATOID NODULE [None]
  - ANAEMIA [None]
  - SYNOVIAL CYST [None]
  - UTERINE CYST [None]
  - LEUKOPENIA [None]
